FAERS Safety Report 4983646-1 (Version None)
Quarter: 2006Q1

REPORT INFORMATION
  Report Type: 
  Country: None (occurrence: None)
  Receive Date: 20060227
  Receipt Date: 20050511
  Transmission Date: 20060701
  Serious: Yes (Disabling)
  Sender: FDA-Public Use
  Company Number: WAES 0505USA01494

PATIENT
  Age: 61 Year
  Sex: Male
  Weight: 99.3377 kg

DRUGS (2)
  1. ZOCOR [Suspect]
     Indication: BLOOD CHOLESTEROL INCREASED
     Dosage: 20 MG DAILY PO
     Route: 048
     Dates: start: 19920101, end: 20020501
  2. ASPIRIN [Concomitant]

REACTIONS (3)
  - ASTHENIA [None]
  - MUSCLE SPASMS [None]
  - MYALGIA [None]
